FAERS Safety Report 6463301-1 (Version None)
Quarter: 2009Q4

REPORT INFORMATION
  Report Type: 
  Country: None (occurrence: None)
  Receive Date: 20091130
  Receipt Date: 20090626
  Transmission Date: 20100525
  Serious: Yes (Hospitalization)
  Sender: FDA-Public Use
  Company Number: US-AMGEN-QUU351136

PATIENT
  Sex: Female

DRUGS (3)
  1. ENBREL [Suspect]
     Indication: RHEUMATOID ARTHRITIS
     Route: 058
     Dates: start: 20051122
  2. LEFLUNOMIDE [Concomitant]
     Dates: start: 20090223
  3. METHOTREXATE [Concomitant]
     Dates: start: 20041101

REACTIONS (3)
  - BREAST CANCER [None]
  - INJECTION SITE PAIN [None]
  - RHEUMATOID ARTHRITIS [None]
